FAERS Safety Report 7550386-4 (Version None)
Quarter: 2011Q2

REPORT INFORMATION
  Report Type: 
  Country: None (occurrence: None)
  Receive Date: 20110615
  Receipt Date: 20110608
  Transmission Date: 20111010
  Serious: Yes (Death)
  Sender: FDA-Public Use
  Company Number: NL-ROCHE-779178

PATIENT
  Sex: Female

DRUGS (11)
  1. CISPLATIN [Suspect]
     Indication: GASTRIC CANCER
     Dosage: DATE OF LAST TREATMENT: 18 MAY 2011, FREQUENCY: Q3W/Q1W, 5 WEEKS. CUMULATIVE DOSE: 216 MG.
     Route: 042
     Dates: start: 20110420
  2. PROPRANOLOL [Concomitant]
  3. POLYETHYLENE GLYCOL [Concomitant]
     Dosage: DAILY DOSE : 3 SACHETS.
     Dates: start: 20110419
  4. LORAZEPAM [Concomitant]
     Dates: start: 20110421
  5. HYDROCHLOROTHIAZIDE [Concomitant]
     Dates: end: 20110425
  6. DOMPERIDON [Concomitant]
     Dates: start: 20110503
  7. EPIRUBICIN [Suspect]
     Indication: GASTRIC CANCER
     Dosage: DATE OF LAST DOSE PRIOR TO SAE: 18 MAY 2011, CUMULATIVE DOSE=180 UG.
     Route: 042
     Dates: start: 20110420
  8. ESOMEPRAZOLE MAGNESIUM [Concomitant]
  9. OCTREOTIDE ACETATE [Concomitant]
     Dates: start: 20110503
  10. CAPECITABINE [Suspect]
     Indication: GASTRIC CANCER
     Dosage: FREQ:BID/2 WEEKS,3 WEEKS BID 5/WEEK,5 WEEK,CUMULATIVE DOSE: 46800 MG,LAST TREATMENT DOSE22 MAY 2011.
     Route: 048
     Dates: start: 20110420
  11. NITRAZEPAM [Concomitant]

REACTIONS (1)
  - ISCHAEMIC STROKE [None]
